FAERS Safety Report 4917508-2 (Version None)
Quarter: 2006Q1

REPORT INFORMATION
  Report Type: 
  Country: None (occurrence: None)
  Receive Date: 20060221
  Receipt Date: 20050414
  Transmission Date: 20060701
  Serious: Yes (Death, Other)
  Sender: FDA-Public Use
  Company Number: US-MERCK-0504USA03124

PATIENT
  Age: 45 Year
  Sex: Male
  Weight: 109 kg

DRUGS (1)
  1. VIOXX [Suspect]
     Indication: ARTHRITIS
     Route: 048
     Dates: start: 20010412, end: 20020506

REACTIONS (4)
  - CARDIAC FAILURE [None]
  - DEATH [None]
  - MYOCARDIAL INFARCTION [None]
  - SINUS DISORDER [None]
